FAERS Safety Report 5174364-8 (Version None)
Quarter: 2006Q4

REPORT INFORMATION
  Report Type: 
  Country: None (occurrence: None)
  Receive Date: 20061214
  Receipt Date: 20060920
  Transmission Date: 20070319
  Serious: Yes (Other)
  Sender: FDA-Public Use
  Company Number: US-ELI_LILLY_AND_COMPANY-US200609005039

PATIENT
  Age: 66 Year
  Sex: Female

DRUGS (13)
  1. MAXZIDE [Concomitant]
  2. ZANTAC [Concomitant]
  3. NAPROSYN [Concomitant]
  4. LODINE [Concomitant]
  5. DESYREL [Concomitant]
  6. LESCOL XL [Concomitant]
  7. OGEN [Concomitant]
  8. PROZAC [Suspect]
     Indication: FIBROMYALGIA
     Dosage: 20 MG, UNKNOWN
     Route: 048
     Dates: start: 19800101
  9. PROZAC [Suspect]
     Dosage: 40 MG, UNK
     Route: 048
  10. PROZAC [Suspect]
     Dosage: 60 MG, UNK
     Route: 048
  11. ATENOLOL [Concomitant]
  12. ZOCOR [Concomitant]
  13. LASIX [Concomitant]
     Dosage: UNK, UNK

REACTIONS (2)
  - AORTIC VALVE INCOMPETENCE [None]
  - MITRAL VALVE INCOMPETENCE [None]
